FAERS Safety Report 5535750-7 (Version None)
Quarter: 2007Q4

REPORT INFORMATION
  Report Type: 
  Country: None (occurrence: None)
  Receive Date: 20071204
  Receipt Date: 20071204
  Transmission Date: 20080405
  Serious: Yes (Hospitalization)
  Sender: FDA-Public Use
  Company Number: None

PATIENT
  Age: 78 Year
  Sex: Female

DRUGS (1)
  1. LINEZOLID [Suspect]
     Dosage: 600MG IV Q120
     Dates: start: 20071105, end: 20071122

REACTIONS (1)
  - THROMBOCYTOPENIA [None]
